FAERS Safety Report 8538814-9 (Version None)
Quarter: 2012Q3

REPORT INFORMATION
  Report Type: 
  Country: None (occurrence: None)
  Receive Date: 20120726
  Receipt Date: 20120716
  Transmission Date: 20120928
  Serious: Yes (Other)
  Sender: FDA-Public Use
  Company Number: US-SANOFI-AVENTIS-2012SA050662

PATIENT
  Age: 71 Year
  Sex: Female

DRUGS (7)
  1. LOVASTATIN [Concomitant]
  2. CALCIUM [Concomitant]
  3. HYDROCHLOROTHIAZIDE [Concomitant]
  4. NIFEDIPINE [Concomitant]
  5. METOPROLOL SUCCINATE [Concomitant]
  6. PLAVIX [Suspect]
     Dates: start: 20110317
  7. ASPIRIN [Concomitant]

REACTIONS (1)
  - VASCULAR OCCLUSION [None]
